FAERS Safety Report 7845115-0 (Version None)
Quarter: 2011Q4

REPORT INFORMATION
  Report Type: 
  Country: None (occurrence: None)
  Receive Date: 20111025
  Receipt Date: 20111020
  Transmission Date: 20120403
  Serious: Yes (Death)
  Sender: FDA-Public Use
  Company Number: TN-SANOFI-AVENTIS-2011SA069606

PATIENT
  Age: 56 Year
  Sex: Male

DRUGS (5)
  1. FAMODINE [Concomitant]
     Route: 048
     Dates: end: 20111002
  2. ATORVASTATIN [Concomitant]
     Route: 048
     Dates: end: 20111002
  3. PLAVIX [Suspect]
     Indication: ACUTE CORONARY SYNDROME
     Route: 048
     Dates: start: 20091222, end: 20111002
  4. ASPEGIC 325 [Concomitant]
     Route: 048
     Dates: end: 20111002
  5. PLAVIX [Suspect]
     Route: 048
     Dates: start: 20091222, end: 20111002

REACTIONS (1)
  - THYROID CANCER METASTATIC [None]
